FAERS Safety Report 22135569 (Version 1)
Quarter: 2023Q1

REPORT INFORMATION
  Report Type: Spontaneous
  Country: US (occurrence: None)
  Receive Date: 20230324
  Receipt Date: 20230324
  Transmission Date: 20230417
  Serious: Yes (Hospitalization, Other)
  Sender: FDA-Public Use
  Company Number: US-ROCHE-3315754

PATIENT
  Age: 64 Year
  Sex: Female

DRUGS (8)
  1. PEGASYS [Suspect]
     Active Substance: PEGINTERFERON ALFA-2A
     Indication: Polycythaemia
     Route: 058
     Dates: start: 201908, end: 201908
  2. PEGASYS [Suspect]
     Active Substance: PEGINTERFERON ALFA-2A
     Indication: Neoplasm malignant
     Route: 058
     Dates: end: 202004
  3. PEGASYS [Suspect]
     Active Substance: PEGINTERFERON ALFA-2A
     Route: 058
     Dates: start: 202006, end: 2023
  4. JAKAFI [Suspect]
     Active Substance: RUXOLITINIB
     Indication: Polycythaemia
     Route: 065
     Dates: start: 201908, end: 202002
  5. JAKAFI [Suspect]
     Active Substance: RUXOLITINIB
     Indication: Neoplasm malignant
     Route: 065
     Dates: start: 202205, end: 202208
  6. JAKAFI [Suspect]
     Active Substance: RUXOLITINIB
     Route: 065
     Dates: start: 2023
  7. HYDROXYUREA [Suspect]
     Active Substance: HYDROXYUREA
     Indication: Product used for unknown indication
     Route: 065
     Dates: start: 2020, end: 2021
  8. HYDROXYUREA [Suspect]
     Active Substance: HYDROXYUREA
     Route: 065

REACTIONS (14)
  - Hepatitis [Unknown]
  - Angina pectoris [Recovered/Resolved]
  - Neuropathy peripheral [Unknown]
  - Joint swelling [Unknown]
  - Folliculitis [Unknown]
  - Platelet count increased [Unknown]
  - Blood test abnormal [Unknown]
  - Bone pain [Unknown]
  - Skin irritation [Unknown]
  - Burning sensation [Unknown]
  - Malaise [Not Recovered/Not Resolved]
  - Pruritus [Unknown]
  - Rash [Unknown]
  - Product use in unapproved indication [Unknown]

NARRATIVE: CASE EVENT DATE: 20190801
